FAERS Safety Report 10332946 (Version 3)
Quarter: 2015Q1

REPORT INFORMATION
  Report Type: Spontaneous
  Country: US (occurrence: US)
  Receive Date: 20140722
  Receipt Date: 20150220
  Transmission Date: 20150720
  Serious: Yes (Hospitalization, Other)
  Sender: FDA-Public Use
  Company Number: US-PFIZER INC-2014198938

PATIENT
  Age: 60 Year
  Sex: Female

DRUGS (2)
  1. BOSULIF [Suspect]
     Active Substance: BOSUTINIB MONOHYDRATE
     Indication: CHRONIC MYELOID LEUKAEMIA
     Dosage: 500 MG, DAILY
     Dates: start: 20140707, end: 2014
  2. BOSULIF [Suspect]
     Active Substance: BOSUTINIB MONOHYDRATE
     Dosage: 300 MG, UNK (3 TABLETS, 100 MG TABLET)
     Dates: start: 20140710

REACTIONS (4)
  - Renal failure [Unknown]
  - Nausea [Unknown]
  - Pneumonia [Unknown]
  - Diarrhoea [Unknown]

NARRATIVE: CASE EVENT DATE: 2014
